FAERS Safety Report 18404397 (Version 1)
Quarter: 2020Q4

REPORT INFORMATION
  Report Type: Spontaneous
  Country: US (occurrence: US)
  Receive Date: 20201020
  Receipt Date: 20201020
  Transmission Date: 20210114
  Serious: Yes (Hospitalization)
  Sender: FDA-Public Use
  Company Number: None

PATIENT
  Sex: Female

DRUGS (12)
  1. LEVALBUTEROL AER [Concomitant]
  2. TADALAFIL 20MG TAB [Suspect]
     Active Substance: TADALAFIL
     Indication: HYPERTENSION
     Dosage: ?          OTHER DOSE:2 TABS;?
     Route: 048
     Dates: start: 20200220
  3. CARVEDILOL, [Concomitant]
  4. CETIRIZINE, [Concomitant]
  5. HYDRALAZINE, [Concomitant]
  6. TRIAMCINOLON PST DEN, [Concomitant]
  7. VITAMIN D [Suspect]
     Active Substance: VITAMIN D NOS
  8. SPIRONOLACT, [Concomitant]
  9. LORATADINE. [Concomitant]
     Active Substance: LORATADINE
  10. PREDNISONE, [Concomitant]
  11. FOLIC ACID, [Concomitant]
  12. METHOTREXATE, [Concomitant]

REACTIONS (2)
  - Drug hypersensitivity [None]
  - Oral disorder [None]
